FAERS Safety Report 25522974 (Version 1)
Quarter: 2025Q3

REPORT INFORMATION
  Report Type: Spontaneous
  Country: US (occurrence: US)
  Receive Date: 20250707
  Receipt Date: 20250707
  Transmission Date: 20251020
  Serious: No
  Sender: PHARMACOSMOS A/S
  Company Number: US-NEBO-697899

PATIENT
  Sex: Female

DRUGS (1)
  1. MONOFERRIC [Suspect]
     Active Substance: FERRIC DERISOMALTOSE
     Indication: Product used for unknown indication

REACTIONS (4)
  - Pyrexia [Unknown]
  - Tachycardia [Unknown]
  - Chills [Unknown]
  - Blood pressure increased [Unknown]
